FAERS Safety Report 13640590 (Version 1)
Quarter: 2017Q2

REPORT INFORMATION
  Report Type: Spontaneous
  Country: US (occurrence: US)
  Receive Date: 20170609
  Receipt Date: 20170609
  Transmission Date: 20170830
  Serious: Yes (Death)
  Sender: FDA-Public Use
  Company Number: None

PATIENT
  Age: 5 Year
  Sex: Female
  Weight: 21.4 kg

DRUGS (3)
  1. CYTARABINE. [Suspect]
     Active Substance: CYTARABINE
     Dates: end: 20170602
  2. DAUNORUBICIN [Suspect]
     Active Substance: DAUNORUBICIN
     Dates: end: 20170531
  3. ETOPOSIDE (VP-16) [Suspect]
     Active Substance: ETOPOSIDE
     Dates: end: 20170601

REACTIONS (8)
  - Bradycardia [None]
  - Hypertension [None]
  - Haemorrhage intracranial [None]
  - Pulmonary oedema [None]
  - Seizure [None]
  - Brain death [None]
  - Epistaxis [None]
  - Tachycardia [None]

NARRATIVE: CASE EVENT DATE: 20170601
